FAERS Safety Report 7478123-2 (Version None)
Quarter: 2011Q2

REPORT INFORMATION
  Report Type: 
  Country: None (occurrence: None)
  Receive Date: 20110511
  Receipt Date: 20110511
  Transmission Date: 20111010
  Serious: Yes (Hospitalization)
  Sender: FDA-Public Use
  Company Number: None

PATIENT
  Age: 62 Year
  Sex: Male
  Weight: 79.1527 kg

DRUGS (9)
  1. IRINOTECAN HYDROCHLORIDE [Suspect]
     Dosage: 65MG/M2
  2. AMLODIPINE [Concomitant]
  3. BEVACIZUMAB [Suspect]
     Indication: OESOPHAGEAL CANCER METASTATIC
     Dosage: 10 MG/KG
     Dates: start: 20100326, end: 20110311
  4. GLYBURIDE [Concomitant]
  5. METFORMIN HCL [Concomitant]
  6. LISINOPRIL [Concomitant]
  7. CISPLATIN [Suspect]
     Indication: OESOPHAGEAL CANCER METASTATIC
     Dosage: 30MG/M2
     Dates: start: 20100326, end: 20110311
  8. HYDROCHLOROTHIAZIDE [Concomitant]
  9. LIPITOR [Concomitant]

REACTIONS (3)
  - HYPONATRAEMIA [None]
  - BILE DUCT STENOSIS [None]
  - BLOOD CREATININE INCREASED [None]
